FAERS Safety Report 17390895 (Version 6)
Quarter: 2022Q4

REPORT INFORMATION
  Report Type: Spontaneous
  Country: FR (occurrence: FR)
  Receive Date: 20200207
  Receipt Date: 20221202
  Transmission Date: 20230113
  Serious: Yes (Other)
  Sender: FDA-Public Use
  Company Number: None

PATIENT
  Age: 45 Year
  Sex: Female
  Weight: 78 kg

DRUGS (10)
  1. ENTYVIO [Suspect]
     Active Substance: VEDOLIZUMAB
     Indication: Crohn^s disease
     Dosage: 300 MILLIGRAM
     Route: 042
     Dates: start: 20160614
  2. HUMIRA [Suspect]
     Active Substance: ADALIMUMAB
     Indication: Crohn^s disease
     Dosage: 40 MILLIGRAM, Q2WEEKS
     Route: 058
     Dates: end: 20160614
  3. CITRIC ACID MONOHYDRATE [Concomitant]
     Active Substance: CITRIC ACID MONOHYDRATE
     Dosage: UNK
  4. MANNITOL [Concomitant]
     Active Substance: MANNITOL
     Dosage: UNK
  5. DISODIUM PHOSPHATE [Concomitant]
     Dosage: UNK
  6. POLYSORBATE 80 [Concomitant]
     Active Substance: POLYSORBATE 80
     Dosage: UNK
  7. SODIUM PHOSPHATE, MONOBASIC [Concomitant]
     Active Substance: SODIUM PHOSPHATE, MONOBASIC
     Dosage: UNK
  8. SODIUM CITRATE [Concomitant]
     Active Substance: SODIUM CITRATE
     Dosage: UNK
  9. SODIUM CHLORIDE [Concomitant]
     Active Substance: SODIUM CHLORIDE
     Dosage: UNK
  10. SODIUM HYDROXIDE [Concomitant]
     Active Substance: SODIUM HYDROXIDE
     Indication: Crohn^s disease
     Dosage: UNK UNK, Q2WEEKS
     Route: 058

REACTIONS (4)
  - Symptom recurrence [Recovered/Resolved]
  - Subcutaneous abscess [Recovered/Resolved]
  - Paronychia [Recovered/Resolved]
  - Folliculitis [Recovered/Resolved]

NARRATIVE: CASE EVENT DATE: 20160803
